FAERS Safety Report 4972592-5 (Version None)
Quarter: 2006Q1

REPORT INFORMATION
  Report Type: 
  Country: None (occurrence: None)
  Receive Date: 20060216
  Receipt Date: 20051213
  Transmission Date: 20060701
  Serious: No
  Sender: FDA-Public Use
  Company Number: TPA2005A01663

PATIENT
  Sex: Female

DRUGS (3)
  1. ROZEREM [Suspect]
     Indication: SOMNOLENCE
     Dosage: 8 MG, HS, PER ORAL
     Route: 048
     Dates: start: 20051123, end: 20051126
  2. SYNTHROID [Concomitant]
  3. WELLBUTRIN [Concomitant]

REACTIONS (1)
  - MIGRAINE [None]
